FAERS Safety Report 7251361-X (Version None)
Quarter: 2011Q1

REPORT INFORMATION
  Report Type: 
  Country: None (occurrence: None)
  Receive Date: 20110119
  Receipt Date: 20110105
  Transmission Date: 20110831
  Serious: Yes (Death)
  Sender: FDA-Public Use
  Company Number: AE 2011-006

PATIENT
  Age: 59 Year
  Sex: Male

DRUGS (12)
  1. DUONEB [Concomitant]
  2. FAZACLO ODT [Suspect]
     Dosage: 150-700 MG DAILY PO
     Route: 048
     Dates: start: 20060427, end: 20110101
  3. PREVACID [Concomitant]
  4. AVELOX [Concomitant]
  5. POTASSIUM [Concomitant]
  6. FLOMAX [Concomitant]
  7. MUCINEX [Concomitant]
  8. COLACE [Concomitant]
  9. LASIX [Concomitant]
  10. REMERON [Concomitant]
  11. PREDNISONE [Concomitant]
  12. VITAMIN AND MINERAL PRENATAL SUPPLEMENT W/ FOLIC ACID CAP [Concomitant]

REACTIONS (1)
  - CHRONIC OBSTRUCTIVE PULMONARY DISEASE [None]
